FAERS Safety Report 5472903-0 (Version None)
Quarter: 2007Q4

REPORT INFORMATION
  Report Type: 
  Country: None (occurrence: None)
  Receive Date: 20071001
  Receipt Date: 20070924
  Transmission Date: 20080405
  Serious: Yes (Other)
  Sender: FDA-Public Use
  Company Number: B0484232A

PATIENT
  Age: 48 Year
  Sex: Female

DRUGS (4)
  1. PAROXETINE [Suspect]
     Indication: DEPRESSION
     Dosage: 15MG PER DAY
     Route: 048
  2. HERBAL MEDICINE [Concomitant]
  3. GLUCOSAMINE SULFATE [Concomitant]
  4. LEVOTHYROXINE SODIUM [Concomitant]

REACTIONS (3)
  - ADVERSE DRUG REACTION [None]
  - DRY MOUTH [None]
  - RETINAL HAEMORRHAGE [None]
